FAERS Safety Report 22698594 (Version 4)
Quarter: 2023Q4

REPORT INFORMATION
  Report Type: Spontaneous
  Country: PT (occurrence: PT)
  Receive Date: 20230712
  Receipt Date: 20231013
  Transmission Date: 20240110
  Serious: Yes (Other)
  Sender: FDA-Public Use
  Company Number: None

PATIENT
  Age: 90 Year
  Sex: Female

DRUGS (21)
  1. SULFASALAZINE [Suspect]
     Active Substance: SULFASALAZINE
     Indication: Myalgia
     Dosage: 500 MG, 1X/DAY (DOSE 1 - 1 PER DAY)
     Route: 048
     Dates: start: 202301, end: 202303
  2. SULFASALAZINE [Suspect]
     Active Substance: SULFASALAZINE
     Indication: Rheumatoid arthritis
     Dosage: 500 MG, 3X/DAY (DOSE 2 - 3 PER DAY WITHOUT ADDITIONAL INFORMATION)
     Route: 048
     Dates: start: 202303, end: 202305
  3. SULFASALAZINE [Suspect]
     Active Substance: SULFASALAZINE
     Dosage: 1000 MG, 2X/DAY (DOSE 3 - 2 AT LUNCH AND 2 AT DINNER)
     Route: 048
     Dates: start: 202305
  4. SULFASALAZINE [Suspect]
     Active Substance: SULFASALAZINE
     Dosage: DOSE 4 - 2 TABLETS 1XDAY, IN THE MORNING
     Route: 048
     Dates: start: 202308, end: 202308
  5. SULFASALAZINE [Suspect]
     Active Substance: SULFASALAZINE
     Dosage: 1000 MG, 2X/DAY (DOSE 5 - 2 TABLETS AT LUNCH + 2 TABLETS AT DINNER)
     Dates: start: 202308
  6. NITROGLYCERIN [Suspect]
     Active Substance: NITROGLYCERIN
     Indication: Arrhythmia
     Dosage: 5 MG, 1X/DAY
     Route: 062
     Dates: start: 202208, end: 2023
  7. NITROGLYCERIN [Suspect]
     Active Substance: NITROGLYCERIN
     Dosage: DOSE 2 - 1 PATCH/DAY (WAS DISCONTINUED AGAIN AT AN UNDETERMINED DATE - NOT MORE THAN 1 MONTH OF USE)
     Route: 062
     Dates: start: 202307, end: 2023
  8. PREDNISOLONE [Suspect]
     Active Substance: PREDNISOLONE
     Dosage: 5 MG, 1X/DAY (DOSE 1 - 1 AT BREAKFAST)
     Route: 048
     Dates: start: 201402, end: 202305
  9. PREDNISOLONE [Suspect]
     Active Substance: PREDNISOLONE
     Dosage: 2.5 MG, 1X/DAY (DOSE 2 - 1/2 AT BREAKFAST (DOSE DECREASE ^DUE TO PRE-DIABETES^)
     Route: 048
     Dates: start: 202305, end: 202309
  10. PREDNISOLONE [Suspect]
     Active Substance: PREDNISOLONE
     Dosage: DOSE 3 - 1 AO PEQUENO ALMO?O
     Route: 048
     Dates: start: 202309
  11. TROMALYT [Concomitant]
     Active Substance: ASPIRIN
     Dosage: UNK
     Route: 048
  12. LYRICA [Concomitant]
     Active Substance: PREGABALIN
     Dosage: UNK
     Route: 048
  13. DAPAGLIFLOZIN [Concomitant]
     Active Substance: DAPAGLIFLOZIN
     Dosage: UNK
     Route: 048
  14. LANSOPRAZOLE [Concomitant]
     Active Substance: LANSOPRAZOLE
     Dosage: UNK
     Route: 048
  15. BROMAZEPAM [Concomitant]
     Active Substance: BROMAZEPAM
     Dosage: UNK
     Route: 048
  16. ULCERMIN [SUCRALFATE] [Concomitant]
     Dosage: UNK
     Route: 048
  17. FUROSEMIDE [Concomitant]
     Active Substance: FUROSEMIDE
     Dosage: UNK
     Route: 048
  18. ACETAMINOPHEN [Concomitant]
     Active Substance: ACETAMINOPHEN
     Dosage: UNK
  19. EXFORGE [Concomitant]
     Active Substance: AMLODIPINE BESYLATE\VALSARTAN
     Dosage: UNK
     Route: 048
  20. DICLOFENAC DIETHYLAMINE [Concomitant]
     Active Substance: DICLOFENAC DIETHYLAMINE
     Dosage: UNK
  21. PROLIA [Concomitant]
     Active Substance: DENOSUMAB
     Dosage: 1 INJECTION EVERY 6 MONTHS
     Route: 058
     Dates: start: 20220322

REACTIONS (6)
  - Feeling hot [Recovered/Resolved]
  - Dry skin [Recovered/Resolved]
  - Pruritus [Recovered/Resolved]
  - Skin induration [Recovered/Resolved]
  - Erythema [Recovered/Resolved]
  - Urticaria [Recovered/Resolved]

NARRATIVE: CASE EVENT DATE: 20230501
